FAERS Safety Report 8601280-9 (Version None)
Quarter: 2012Q3

REPORT INFORMATION
  Report Type: 
  Country: None (occurrence: None)
  Receive Date: 20120817
  Receipt Date: 20120807
  Transmission Date: 20120928
  Serious: Yes (Death)
  Sender: FDA-Public Use
  Company Number: DE-EISAI INC-E7389-02873-SOL-DE

PATIENT
  Sex: Female

DRUGS (2)
  1. HALAVEN [Suspect]
     Route: 041
     Dates: start: 20111107
  2. HALAVEN [Suspect]
     Route: 041
     Dates: end: 20120515

REACTIONS (2)
  - VOMITING [None]
  - NAUSEA [None]
